FAERS Safety Report 20888511 (Version 1)
Quarter: 2022Q2

REPORT INFORMATION
  Report Type: Spontaneous
  Country: US (occurrence: US)
  Receive Date: 20220529
  Receipt Date: 20220529
  Transmission Date: 20220721
  Serious: No
  Sender: FDA-Public Use
  Company Number: US-BRISTOL-MYERS SQUIBB COMPANY-2022-043155

PATIENT
  Age: 75 Year
  Sex: Male

DRUGS (1)
  1. REVLIMID [Suspect]
     Active Substance: LENALIDOMIDE
     Indication: Plasma cell myeloma
     Dosage: DOSE: 25 MILLIGRAM, FREQ: TAKE 1 CAPSULE BY MOUTH EVERY DAY FOR 21 DAYS ON, THEN OFF FOR 7 DAYS
     Route: 048
     Dates: start: 20220510

REACTIONS (4)
  - Paraesthesia oral [Unknown]
  - Anxiety [Unknown]
  - Asthenia [Unknown]
  - Dysgeusia [Unknown]
